FAERS Safety Report 19028755 (Version 4)
Quarter: 2022Q2

REPORT INFORMATION
  Report Type: Report from Study
  Country: US (occurrence: US)
  Receive Date: 20210319
  Receipt Date: 20220525
  Transmission Date: 20220720
  Serious: Yes (Hospitalization)
  Sender: FDA-Public Use
  Company Number: US-BIOGEN-2021BI00991800

PATIENT
  Age: 57 Year
  Sex: Male

DRUGS (24)
  1. TYSABRI [Suspect]
     Active Substance: NATALIZUMAB
     Indication: Multiple sclerosis
     Route: 065
     Dates: start: 20111017, end: 20120109
  2. TYSABRI [Suspect]
     Active Substance: NATALIZUMAB
     Route: 065
     Dates: start: 20120327
  3. TYSABRI [Suspect]
     Active Substance: NATALIZUMAB
     Route: 065
     Dates: start: 20210128
  4. TYSABRI [Suspect]
     Active Substance: NATALIZUMAB
     Dosage: INFUSED OVER 1 HOUR
     Route: 065
     Dates: start: 20120327, end: 20210826
  5. TRAZODONE [Suspect]
     Active Substance: TRAZODONE HYDROCHLORIDE
     Indication: Product used for unknown indication
     Route: 065
  6. BACLOFEN [Concomitant]
     Active Substance: BACLOFEN
     Indication: Muscle spasms
     Dosage: TAKE ONE TABLET BY MOUTH TWICE A DAY
     Route: 048
  7. BACLOFEN [Concomitant]
     Active Substance: BACLOFEN
     Dosage: TAKE ONE TABLET AT BEDTIME AS NEEDED FOR MUSCLE SPASMS
     Route: 048
  8. CABERGOLINE [Concomitant]
     Active Substance: CABERGOLINE
     Indication: Product used for unknown indication
     Dosage: TAKE ONE TABLET BY MOUTH TWICE, EVERY WEEK ON TUESDAYS AND FRIDAYS.
     Route: 048
  9. CHOLECALCIF [Concomitant]
     Indication: Vitamin supplementation
     Dosage: (D3-1,000UNIT) TAKE 2 TABLETS BY MOUTH THREE TIMES A DAY AT 7AM, 3PM AND 9PM
     Route: 048
  10. ENEMA, PHOSPHATE [Concomitant]
     Indication: Gastrointestinal disorder
     Dosage: 4.5 OZ, USE CONTENTS RECTALLY EVERY OTHER DAY (ON MONDAY, WEDNESDAY AND FRIDAY FOR BOWEL ROUTINE)
     Route: 054
  11. KEPPRA [Concomitant]
     Active Substance: LEVETIRACETAM
     Indication: Seizure prophylaxis
     Dosage: 500MG TAB; TAKE ONE AND ONE-HALF TABLETS BY MOUTH TWICE A DAY
     Route: 048
  12. METHYLPHENIDATE HYDROCHLORIDE [Concomitant]
     Active Substance: METHYLPHENIDATE HYDROCHLORIDE
     Indication: Disturbance in attention
     Dosage: TAKE ONE TABLET BY MOUTH, EVERY MORNING AND TAKE ONE TABLET EVERYDAY AT 1200 NOON.
     Route: 048
  13. OMEPRAZOLE [Concomitant]
     Active Substance: OMEPRAZOLE
     Indication: Hyperchlorhydria
     Dosage: TAKE AT BEDTIME; ON AN EMPTY STOMACH
     Route: 048
  14. OXYBUTYNIN CHLORIDE [Concomitant]
     Active Substance: OXYBUTYNIN CHLORIDE
     Indication: Hypertonic bladder
     Dosage: TAKE ONE TABLET BY MOUTH THREE TIMES A DAY AS NEEDED
     Route: 048
  15. POLYETHYLENE GLYCOL [Concomitant]
     Active Substance: POLYETHYLENE GLYCOL
     Indication: Constipation
     Dosage: 3350 ORAL PWDR, 510G, TAKE 1 CAPSULE (17 GRAMS) BY MOUTH EVERY OTHER DAY MIX PWDER WITH WATER WIL...
     Route: 048
  16. RENACIDIN IRRG SOLN [Concomitant]
     Indication: Product used for unknown indication
     Dosage: 30ML UD IRRIGATE 30ML IRRIGATION TWICE A DAY, INSTILL TO BLADDER VIA CATHETER, PLUG CATHETER FOR ...
     Route: 050
  17. SILDENAFIL CITRATE [Concomitant]
     Active Substance: SILDENAFIL CITRATE
     Indication: Product used for unknown indication
     Dosage: TAKE ONE TABLET BY MOUTH AS NEEDED ON AN EMPTY STOMACH, 1 HOUR PRIOR TO SEX; NOT TO EXCEED 1 DOSE...
     Route: 048
  18. SIMVASTATIN [Concomitant]
     Active Substance: SIMVASTATIN
     Indication: Hypercholesterolaemia
     Dosage: TAKE ONE HALF TABLET BY MOUTH AT BED TIME, AVOID GRAPEFRUIT AND ITS JUICE WITH THIS DRUG
     Route: 048
  19. SODIUM FLUORIDE [Concomitant]
     Active Substance: SODIUM FLUORIDE
     Indication: Dental disorder prophylaxis
     Dosage: BRUSH SMALL AMOUNT DENTAL TWICE A DAY
     Route: 004
  20. THIAMINE HYDROCHLORIDE [Concomitant]
     Active Substance: THIAMINE HYDROCHLORIDE
     Indication: Nutritional supplementation
     Dosage: TAKE ONE TABLET BY MOUTH EVERY DAY
     Route: 048
  21. VENLAFAXINE HCL [Concomitant]
     Active Substance: VENLAFAXINE HYDROCHLORIDE
     Indication: Depression
     Route: 048
  22. ASCORBIC ACID\VITAMIN B COMPLEX [Concomitant]
     Active Substance: ASCORBIC ACID\VITAMIN B COMPLEX
     Indication: Product used for unknown indication
     Route: 048
  23. MELATONIN [Concomitant]
     Active Substance: MELATONIN
     Indication: Sleep disorder
     Route: 065
  24. VITAMINS [Concomitant]
     Active Substance: VITAMINS
     Indication: Product used for unknown indication
     Route: 065

REACTIONS (7)
  - Mental status changes [Recovered/Resolved]
  - Klebsiella infection [Recovered/Resolved]
  - Escherichia urinary tract infection [Recovered/Resolved]
  - Urinary tract infection enterococcal [Recovered/Resolved]
  - Urosepsis [Unknown]
  - Pneumonia [Unknown]
  - Urinary tract infection [Unknown]

NARRATIVE: CASE EVENT DATE: 20210901
